FAERS Safety Report 21930913 (Version 6)
Quarter: 2023Q1

REPORT INFORMATION
  Report Type: Spontaneous
  Country: ES (occurrence: ES)
  Receive Date: 20230131
  Receipt Date: 20230317
  Transmission Date: 20230418
  Serious: Yes (Death, Hospitalization, Other)
  Sender: FDA-Public Use
  Company Number: ES-SA-SAC20230130000543

PATIENT
  Age: 14 Month
  Sex: Female
  Weight: 7.95 kg

DRUGS (2)
  1. IMIGLUCERASE [Suspect]
     Active Substance: IMIGLUCERASE
     Indication: Gaucher^s disease type III
     Dosage: 60 IU/KG, QOW
     Dates: start: 20221017, end: 20230213
  2. MIGLUSTAT [Concomitant]
     Active Substance: MIGLUSTAT
     Indication: Gaucher^s disease type III

REACTIONS (7)
  - Pneumonia [Fatal]
  - Sepsis [Fatal]
  - Multiple organ dysfunction syndrome [Fatal]
  - Influenza [Fatal]
  - Gastroenteritis [Unknown]
  - Pyrexia [Unknown]
  - Seizure [Unknown]

NARRATIVE: CASE EVENT DATE: 20221215
